FAERS Safety Report 14624672 (Version 1)
Quarter: 2018Q1

REPORT INFORMATION
  Report Type: Spontaneous
  Country: US (occurrence: US)
  Receive Date: 20180312
  Receipt Date: 20180312
  Transmission Date: 20180509
  Serious: No
  Sender: FDA-Public Use
  Company Number: US-PFIZER INC-2018092902

PATIENT
  Age: 71 Year
  Sex: Male

DRUGS (2)
  1. DILANTIN [Suspect]
     Active Substance: PHENYTOIN
     Dosage: 3 DF, 1X/DAY (30 DIRECTIONS, 3 CAPS Q EVENING)
  2. DILANTIN [Suspect]
     Active Substance: PHENYTOIN
     Dosage: 5 DF, 1X/DAY (100 DIRECTIONS, 5 CAPS Q EVENING)

REACTIONS (1)
  - Off label use [Unknown]
